FAERS Safety Report 6131619-8 (Version None)
Quarter: 2009Q1

REPORT INFORMATION
  Report Type: 
  Country: None (occurrence: None)
  Receive Date: 20090325
  Receipt Date: 20081203
  Transmission Date: 20090719
  Serious: No
  Sender: FDA-Public Use
  Company Number: US-BRISTOL-MYERS SQUIBB COMPANY-14429625

PATIENT
  Age: 67 Year
  Sex: Female

DRUGS (12)
  1. ERBITUX [Suspect]
     Indication: SQUAMOUS CELL CARCINOMA
     Dosage: RECEIVED THE 7TH CYCLE ON 03-DEC-2008
  2. ERBITUX [Suspect]
     Indication: COLORECTAL CANCER METASTATIC
     Dosage: RECEIVED THE 7TH CYCLE ON 03-DEC-2008
  3. INSULIN [Concomitant]
  4. EVISTA [Concomitant]
  5. PAXIL [Concomitant]
  6. TYLENOL [Concomitant]
  7. LORAZEPAM [Concomitant]
  8. ACIPHEX [Concomitant]
  9. SIMVASTATIN [Concomitant]
  10. DECADRON [Concomitant]
     Indication: PREMEDICATION
     Route: 042
  11. KYTRIL [Concomitant]
     Indication: PREMEDICATION
     Route: 042
  12. BENADRYL [Concomitant]
     Indication: PREMEDICATION
     Route: 042

REACTIONS (2)
  - DERMATITIS ACNEIFORM [None]
  - ONYCHOMYCOSIS [None]
